FAERS Safety Report 7998942-3 (Version None)
Quarter: 2011Q4

REPORT INFORMATION
  Report Type: 
  Country: None (occurrence: None)
  Receive Date: 20111221
  Receipt Date: 20111213
  Transmission Date: 20120403
  Serious: Yes (Hospitalization)
  Sender: FDA-Public Use
  Company Number: US-BAYER-2011-045182

PATIENT
  Age: 47 Year
  Sex: Female
  Weight: 104.31 kg

DRUGS (4)
  1. SIMVASTATIN [Concomitant]
     Indication: BLOOD CHOLESTEROL INCREASED
     Dosage: UNK
     Dates: start: 20070101
  2. PAXIL [Concomitant]
     Indication: ANXIETY
     Dosage: UNK
     Dates: start: 20040101
  3. YASMIN [Suspect]
     Indication: MENSTRUATION IRREGULAR
     Dosage: UNK
     Dates: start: 20040901, end: 20071201
  4. ZOCOR [Concomitant]
     Indication: BLOOD CHOLESTEROL INCREASED
     Dosage: UNK

REACTIONS (9)
  - ABDOMINAL PAIN [None]
  - ANXIETY [None]
  - VOMITING [None]
  - CHOLELITHIASIS [None]
  - NAUSEA [None]
  - EMOTIONAL DISTRESS [None]
  - CHOLECYSTITIS ACUTE [None]
  - PAIN [None]
  - GENERAL PHYSICAL HEALTH DETERIORATION [None]
